FAERS Safety Report 11092374 (Version 1)
Quarter: 2015Q2

REPORT INFORMATION
  Report Type: Spontaneous
  Country: US (occurrence: None)
  Receive Date: 20150505
  Receipt Date: 20150505
  Transmission Date: 20150821
  Serious: No
  Sender: FDA-Public Use
  Company Number: None

PATIENT
  Sex: Female

DRUGS (1)
  1. AMLODIPINE BESYLATE. [Suspect]
     Active Substance: AMLODIPINE BESYLATE
     Route: 048

REACTIONS (32)
  - Asthenia [None]
  - Pain [None]
  - Hypoaesthesia [None]
  - Nausea [None]
  - Initial insomnia [None]
  - Vomiting [None]
  - Diarrhoea [None]
  - Tremor [None]
  - Headache [None]
  - Flatulence [None]
  - Abdominal discomfort [None]
  - Heart rate decreased [None]
  - Anxiety [None]
  - Paraesthesia [None]
  - Abdominal pain upper [None]
  - Sedation [None]
  - Constipation [None]
  - Nervousness [None]
  - Tinnitus [None]
  - Myalgia [None]
  - Rash [None]
  - Peripheral swelling [None]
  - Dry mouth [None]
  - Pruritus [None]
  - Dizziness [None]
  - Fatigue [None]
  - Feeling hot [None]
  - Erythema [None]
  - Heart rate increased [None]
  - Burning sensation [None]
  - Sexual dysfunction [None]
  - Muscular weakness [None]
